FAERS Safety Report 7222723-1 (Version None)
Quarter: 2011Q1

REPORT INFORMATION
  Report Type: 
  Country: None (occurrence: None)
  Receive Date: 20110112
  Receipt Date: 20101210
  Transmission Date: 20110831
  Serious: Yes (Other)
  Sender: FDA-Public Use
  Company Number: PHHY2010FR87057

PATIENT
  Sex: Female

DRUGS (5)
  1. SOMATULINE LP [Concomitant]
     Dosage: 120 ONE INJ MONTHLY
  2. SANDOSTATIN LAR [Suspect]
     Dosage: UNK
     Dates: start: 19991029, end: 20020325
  3. FSH [Concomitant]
     Indication: INFERTILITY
  4. SANDOSTATIN LAR [Suspect]
     Indication: ACROMEGALY
     Dosage: UNK
     Dates: start: 19980218, end: 19990201
  5. CLOMID [Concomitant]

REACTIONS (7)
  - BLOOD GROWTH HORMONE INCREASED [None]
  - INDUCED LABOUR [None]
  - HEADACHE [None]
  - NEOPLASM PROGRESSION [None]
  - DRUG EXPOSURE DURING PREGNANCY [None]
  - PREMATURE LABOUR [None]
  - INSULIN-LIKE GROWTH FACTOR INCREASED [None]
